FAERS Safety Report 16380073 (Version 2)
Quarter: 2019Q4

REPORT INFORMATION
  Report Type: Report from Study
  Country: JP (occurrence: JP)
  Receive Date: 20190601
  Receipt Date: 20191203
  Transmission Date: 20200122
  Serious: Yes (Other)
  Sender: FDA-Public Use
  Company Number: JP-009507513-1905JPN003418J

PATIENT
  Age: 46 Year
  Sex: Male
  Weight: 68 kg

DRUGS (22)
  1. ELNEOPA NF NO. 1 [Concomitant]
     Dosage: UNK
     Route: 065
     Dates: start: 20190410, end: 20190505
  2. E KEPPRA [Concomitant]
     Active Substance: LEVETIRACETAM
     Dosage: UNK UNK, BID
     Route: 048
     Dates: start: 20190410, end: 20190505
  3. MEROPENEM. [Concomitant]
     Active Substance: MEROPENEM
     Dosage: UNK
     Route: 041
     Dates: start: 20190410, end: 20190422
  4. GLUCOSE AND POTASSIUM CHLORIDE BAXTER [Concomitant]
     Dosage: UNK
     Route: 065
     Dates: start: 20190410, end: 20190505
  5. PREVYMIS [Suspect]
     Active Substance: LETERMOVIR
     Dosage: 960 MILLIGRAM, QD
     Route: 048
     Dates: start: 20190415, end: 20190415
  6. ALBUMIN TANNATE [Concomitant]
     Active Substance: ALBUMIN BOVINE\TANNIC ACID
     Dosage: UNK UNK, TID
     Route: 065
     Dates: start: 20190424, end: 20190430
  7. ACICLOVIR [Concomitant]
     Active Substance: ACYCLOVIR
     Dosage: UNK UNK, 5 TIMES PER DAY
     Route: 048
     Dates: start: 20190410, end: 20190503
  8. LOXOPROFEN [Concomitant]
     Active Substance: LOXOPROFEN
     Dosage: UNK
     Route: 048
     Dates: start: 20190410, end: 20190505
  9. BIOLACTIS [Concomitant]
     Active Substance: LACTOBACILLUS CASEI
     Dosage: UNK UNK, TID
     Route: 048
     Dates: start: 20190410, end: 20190505
  10. URSODEOXYCHOLIC ACID [Concomitant]
     Active Substance: URSODIOL
     Dosage: UNK, TID
     Route: 048
  11. SODIUM CHLORIDE. [Concomitant]
     Active Substance: SODIUM CHLORIDE
     Dosage: UNK
     Route: 041
     Dates: start: 20190410, end: 20190422
  12. SODIUM CHLORIDE. [Concomitant]
     Active Substance: SODIUM CHLORIDE
     Dosage: UNK
     Route: 051
     Dates: start: 20190410, end: 20190505
  13. LEUCOVORIN. [Concomitant]
     Active Substance: LEUCOVORIN
     Dosage: UNK
     Route: 041
     Dates: start: 20190410, end: 20190415
  14. PROGRAF [Concomitant]
     Active Substance: TACROLIMUS
     Dosage: UNK
     Route: 051
     Dates: start: 20190410, end: 20190505
  15. PREVYMIS [Suspect]
     Active Substance: LETERMOVIR
     Indication: ANTIVIRAL PROPHYLAXIS
     Dosage: 480 MILLIGRAM, QD
     Route: 048
     Dates: start: 20190410, end: 20190414
  16. PREVYMIS [Suspect]
     Active Substance: LETERMOVIR
     Dosage: 480 MILLIGRAM, QD
     Route: 048
     Dates: start: 20190416, end: 20190427
  17. TAMSULOSIN HYDROCHLORIDE OD [Concomitant]
     Active Substance: TAMSULOSIN HYDROCHLORIDE
     Dosage: 1 DOSAGE FORM, QD
     Route: 048
     Dates: start: 20190410, end: 20190410
  18. NEXIUM [Concomitant]
     Active Substance: ESOMEPRAZOLE MAGNESIUM
     Dosage: UNK UNK, QD
     Route: 048
     Dates: start: 20190410, end: 20190505
  19. FENTANYL. [Concomitant]
     Active Substance: FENTANYL
     Dosage: UNK
     Route: 051
     Dates: start: 20190410, end: 20190505
  20. FLUCONAZOLE. [Concomitant]
     Active Substance: FLUCONAZOLE
     Dosage: UNK, QD
     Route: 048
     Dates: start: 20190410, end: 20190505
  21. SODIUM CHLORIDE. [Concomitant]
     Active Substance: SODIUM CHLORIDE
     Dosage: UNK
     Route: 041
     Dates: start: 20190410, end: 20190504
  22. CALONAL [Concomitant]
     Active Substance: ACETAMINOPHEN
     Dosage: UNK
     Route: 048

REACTIONS (4)
  - Cytomegalovirus infection [Unknown]
  - Adverse event [Unknown]
  - Acute graft versus host disease in skin [Unknown]
  - Overdose [Unknown]

NARRATIVE: CASE EVENT DATE: 20190415
